FAERS Safety Report 4971310-4 (Version None)
Quarter: 2006Q2

REPORT INFORMATION
  Report Type: 
  Country: None (occurrence: None)
  Receive Date: 20060413
  Receipt Date: 20050412
  Transmission Date: 20061013
  Serious: Yes (Death, Hospitalization, Other)
  Sender: FDA-Public Use
  Company Number: US-MERCK-0504USA02126

PATIENT
  Age: 78 Year
  Sex: Female
  Weight: 80 kg

DRUGS (1)
  1. VIOXX [Suspect]
     Route: 048

REACTIONS (7)
  - CARDIAC FAILURE CONGESTIVE [None]
  - COMA [None]
  - EMOTIONAL DISORDER [None]
  - MYOCARDIAL INFARCTION [None]
  - PNEUMONIA [None]
  - RESPIRATORY FAILURE [None]
  - RHEUMATOID ARTHRITIS [None]
